FAERS Safety Report 8710053 (Version 2)
Quarter: 2013Q4

REPORT INFORMATION
  Report Type: Spontaneous
  Country: US (occurrence: US)
  Receive Date: 20120806
  Receipt Date: 20131031
  Transmission Date: 20140711
  Serious: Yes (Disabling, Other)
  Sender: FDA-Public Use
  Company Number: US-009507513-1207USA011300

PATIENT
  Sex: Female

DRUGS (20)
  1. ZOCOR [Suspect]
     Dosage: 40 MG, QD
     Route: 048
  2. ATENOLOL [Suspect]
     Dosage: 25 MG, QD
     Route: 048
  3. NORVASC [Suspect]
     Route: 048
  4. NITROSTAT [Suspect]
     Dosage: 0.4 MG, PRN
  5. DILANTIN [Suspect]
     Dosage: 300 MG, BID
     Route: 048
  6. METHOCARBAMOL [Suspect]
     Dosage: 750 MG, PRN
     Route: 048
  7. ISOSORBIDE MONONITRATE [Suspect]
     Dosage: 30 MG, TID
  8. POTASSIUM CHLORIDE [Suspect]
     Dosage: 8 MEQ, QD
  9. ASPIRIN [Suspect]
     Dosage: 81 MG, PRN
  10. LACTULOSE [Suspect]
     Dosage: 30 MG, PRN
  11. DEPAKOTE [Suspect]
     Dosage: 500 MG, BID
     Route: 048
  12. HUMULIN R [Suspect]
     Dosage: 24 IU, TID
  13. FUROSEMIDE [Suspect]
     Dosage: 40 MG, BID
     Route: 048
  14. LANTUS [Suspect]
     Dosage: 80 IU, QAM
  15. LANTUS [Suspect]
     Dosage: 90 IU, QPM
  16. TYLENOL WITH CODEINE [Suspect]
     Dosage: UNK, QD
  17. ZANTAC [Suspect]
     Dosage: 300 MG, TID
  18. REMERON [Suspect]
     Dosage: 30 MG, QD
     Route: 048
  19. ATIVAN [Suspect]
     Dosage: 1 MG, TID
     Route: 048
  20. LOMOTIL [Suspect]
     Dosage: 2.5 MG, QID
     Route: 048

REACTIONS (4)
  - Chronic obstructive pulmonary disease [Unknown]
  - Bedridden [Unknown]
  - Emphysema [Unknown]
  - Amnesia [Unknown]
